FAERS Safety Report 19927856 (Version 1)
Quarter: 2021Q4

REPORT INFORMATION
  Report Type: Spontaneous
  Country: US (occurrence: US)
  Receive Date: 20211006
  Receipt Date: 20211006
  Transmission Date: 20220303
  Serious: Yes (Other)
  Sender: FDA-Public Use
  Company Number: None

PATIENT
  Age: 34 Year
  Sex: Male

DRUGS (1)
  1. DEXTROAMPHET SACCHARAT, AMPHET ASPARTATE, DEXTROAMPHET SULFATE AND AMP [Suspect]
     Active Substance: AMPHETAMINE ASPARTATE\AMPHETAMINE SULFATE\DEXTROAMPHETAMINE SACCHARATE\DEXTROAMPHETAMINE SULFATE
     Indication: Attention deficit hyperactivity disorder
     Dates: start: 20210930, end: 20211005

REACTIONS (7)
  - Nausea [None]
  - Headache [None]
  - Confusional state [None]
  - Ear disorder [None]
  - Hypoaesthesia [None]
  - Hypoaesthesia eye [None]
  - Frustration tolerance decreased [None]

NARRATIVE: CASE EVENT DATE: 20210103
